FAERS Safety Report 19793261 (Version 1)
Quarter: 2021Q3

REPORT INFORMATION
  Report Type: Spontaneous
  Country: US (occurrence: US)
  Receive Date: 20210906
  Receipt Date: 20210906
  Transmission Date: 20211014
  Serious: Yes (Disabling)
  Sender: FDA-Public Use
  Company Number: NVSC2021US192813

PATIENT
  Age: 51 Year
  Sex: Female

DRUGS (1)
  1. COLESTYRAMINE [Suspect]
     Active Substance: CHOLESTYRAMINE
     Indication: PRODUCT USED FOR UNKNOWN INDICATION
     Dosage: UNK
     Route: 065

REACTIONS (4)
  - Product label issue [Unknown]
  - Frustration tolerance decreased [Unknown]
  - Tooth injury [Unknown]
  - Tooth loss [Unknown]
